FAERS Safety Report 18129039 (Version 1)
Quarter: 2020Q3

REPORT INFORMATION
  Report Type: Spontaneous
  Country: US (occurrence: US)
  Receive Date: 20200810
  Receipt Date: 20200810
  Transmission Date: 20201103
  Serious: No
  Sender: FDA-Public Use
  Company Number: US-DSJP-DSU-2020-122729

PATIENT

DRUGS (3)
  1. AMLODIPINE W/OLMESARTAN MEDOXOMIL [Suspect]
     Active Substance: AMLODIPINE MALEATE\OLMESARTAN MEDOXOMIL
     Indication: HYPERTENSION
     Dosage: ONE EVERY COUPLE OF DAYS
     Route: 048
  2. AZOR [Suspect]
     Active Substance: AMLODIPINE BESYLATE\OLMESARTAN MEDOXOMIL
     Indication: HYPERTENSION
     Dosage: 1 DF (10/40MG), QD
     Route: 048
  3. AMLODIPINE AND OLMESARTAN MEDOXOMIL [Suspect]
     Active Substance: AMLODIPINE BESYLATE\OLMESARTAN MEDOXOMIL
     Indication: HYPERTENSION
     Dosage: 1 DF (10/40MG), QD
     Route: 048

REACTIONS (4)
  - Rash [Unknown]
  - Pruritus [Unknown]
  - Cough [Recovered/Resolved]
  - Skin irritation [Unknown]
